FAERS Safety Report 17764765 (Version 3)
Quarter: 2021Q1

REPORT INFORMATION
  Report Type: Spontaneous
  Country: BE (occurrence: BE)
  Receive Date: 20200511
  Receipt Date: 20210215
  Transmission Date: 20210419
  Serious: Yes (Death, Hospitalization, Other)
  Sender: FDA-Public Use
  Company Number: BE-GLAXOSMITHKLINE-BE2020EME076855

PATIENT
  Age: 37 Year
  Sex: Male
  Weight: 68 kg

DRUGS (7)
  1. PARACETAMOL [Concomitant]
     Active Substance: ACETAMINOPHEN
     Indication: PAIN
  2. NUCALA [Suspect]
     Active Substance: MEPOLIZUMAB
     Indication: ASTHMA
     Dosage: 100 MG, Z,(MONTHLY)
     Route: 058
     Dates: start: 20170614
  3. DUOVENT HFA [Concomitant]
     Active Substance: FENOTEROL HYDROBROMIDE\IPRATROPIUM BROMIDE
     Indication: ASTHMA
     Dosage: UNK
     Dates: start: 20081208
  4. AUGMENTIN [Concomitant]
     Active Substance: AMOXICILLIN\CLAVULANATE POTASSIUM
     Indication: SYNOVIAL CYST
     Dosage: 3 DF, QD,(875/125)
     Route: 048
     Dates: start: 20200427, end: 20200504
  5. PARACETAMOL [Concomitant]
     Active Substance: ACETAMINOPHEN
     Indication: PYREXIA
     Dosage: 3 DF, QD (TABLETS)
     Route: 048
     Dates: start: 20200423, end: 20200502
  6. SINGULAIR [Concomitant]
     Active Substance: MONTELUKAST SODIUM
     Indication: ASTHMA
     Dosage: 10 UG, QD
     Route: 048
     Dates: start: 20081208
  7. INUVAIR [Concomitant]
     Active Substance: BECLOMETHASONE DIPROPIONATE\FORMOTEROL FUMARATE
     Indication: ASTHMA
     Dosage: 200 UG, BID
     Route: 055
     Dates: start: 20140917

REACTIONS (4)
  - Eosinophil count increased [Fatal]
  - Death [Fatal]
  - Adrenal gland cancer [Fatal]
  - Lymphoma [Fatal]

NARRATIVE: CASE EVENT DATE: 20200505
